FAERS Safety Report 5531808-7 (Version None)
Quarter: 2007Q4

REPORT INFORMATION
  Report Type: 
  Country: None (occurrence: None)
  Receive Date: 20071128
  Receipt Date: 20071128
  Transmission Date: 20080405
  Serious: Yes (Other)
  Sender: FDA-Public Use
  Company Number: None

PATIENT
  Age: 55 Year
  Sex: Female
  Weight: 102.5129 kg

DRUGS (3)
  1. CHANTIX [Suspect]
     Indication: SMOKING CESSATION THERAPY
     Dosage: 1.71MG MORNIG; 1.71 NIGT
     Dates: start: 20070925, end: 20070925
  2. CHANTIX [Suspect]
     Indication: SMOKING CESSATION THERAPY
     Dosage: 1.71MG MORNIG; 1.71 NIGT
     Dates: start: 20071008, end: 20071011
  3. CHANTIX [Suspect]

REACTIONS (9)
  - AGGRESSION [None]
  - ANGER [None]
  - CARDIAC DISORDER [None]
  - CRYING [None]
  - DEPRESSION [None]
  - HOMICIDAL IDEATION [None]
  - INSOMNIA [None]
  - NAUSEA [None]
  - NIGHTMARE [None]
